FAERS Safety Report 18214965 (Version 1)
Quarter: 2020Q3

REPORT INFORMATION
  Report Type: Spontaneous
  Country: TH (occurrence: TH)
  Receive Date: 20200831
  Receipt Date: 20200831
  Transmission Date: 20201103
  Serious: Yes (Other)
  Sender: FDA-Public Use
  Company Number: TH-BAUSCH-BL-2020-024740

PATIENT
  Age: 36 Year
  Sex: Male

DRUGS (1)
  1. DEXAMETHASONE. [Suspect]
     Active Substance: DEXAMETHASONE
     Indication: TENDONITIS
     Dosage: HIGH DOSE
     Route: 065

REACTIONS (2)
  - Familial periodic paralysis [Recovered/Resolved]
  - Thyrotoxic periodic paralysis [Recovered/Resolved]
